FAERS Safety Report 8995974 (Version 1)
Quarter: 2013Q1

REPORT INFORMATION
  Report Type: Spontaneous
  Country: US (occurrence: US)
  Receive Date: 20130103
  Receipt Date: 20130103
  Transmission Date: 20140127
  Serious: No
  Sender: FDA-Public Use
  Company Number: US-ABBOTT-12P-163-1006909-00

PATIENT
  Age: 59 Year
  Sex: Female
  Weight: 68.1 kg

DRUGS (3)
  1. SYNTHROID [Suspect]
     Indication: HYPOTHYROIDISM
     Dates: start: 2012, end: 2012
  2. SYNTHROID [Suspect]
     Dosage: 1/2 OF A 75 MCG TABLET 2 DAYS A WEEK THEN ONE FULL TABLET OTHER DAYS OF THE WEEK.
     Dates: start: 201206
  3. SYNTHROID [Suspect]
     Dosage: 1/2 OF A 75 MCG TABLET 3 DAYS A WEEK THEN ONE FULL TABLET OTHER DAYS OF WEEK
     Dates: start: 2012

REACTIONS (1)
  - Alopecia [Unknown]
